FAERS Safety Report 17323236 (Version 1)
Quarter: 2020Q1

REPORT INFORMATION
  Report Type: Other
  Country: US (occurrence: US)
  Receive Date: 20200127
  Receipt Date: 20200127
  Transmission Date: 20200409
  Serious: No
  Sender: FDA-Public Use
  Company Number: US-ACORDA-ACO_162897_2019

PATIENT
  Sex: Female

DRUGS (1)
  1. AMPYRA [Suspect]
     Active Substance: DALFAMPRIDINE
     Indication: PRODUCT USED FOR UNKNOWN INDICATION
     Dosage: 10 MILLIGRAM, BID
     Route: 048

REACTIONS (10)
  - Fall [Unknown]
  - Disturbance in attention [Unknown]
  - Contusion [Unknown]
  - Nasal injury [Unknown]
  - Bronchitis [Unknown]
  - Diarrhoea [Unknown]
  - Fatigue [Unknown]
  - Lip injury [Unknown]
  - Tremor [Unknown]
  - Walking aid user [Unknown]

NARRATIVE: CASE EVENT DATE: 2019
